FAERS Safety Report 5487637-6 (Version None)
Quarter: 2007Q4

REPORT INFORMATION
  Report Type: 
  Country: None (occurrence: None)
  Receive Date: 20071012
  Receipt Date: 20071012
  Transmission Date: 20080405
  Serious: Yes (Life-Threatening)
  Sender: FDA-Public Use
  Company Number: None

PATIENT
  Sex: Male
  Weight: 57.6068 kg

DRUGS (1)
  1. CEPHALEXIN [Suspect]
     Indication: CELLULITIS
     Dosage: 500MG QID, PO ONLY ONE DOSE WAS GIVEN
     Route: 048
     Dates: start: 20071008

REACTIONS (1)
  - ANAPHYLACTIC REACTION [None]
